FAERS Safety Report 9398549 (Version 1)
Quarter: 2013Q3

REPORT INFORMATION
  Report Type: Spontaneous
  Country: FR (occurrence: FR)
  Receive Date: 20130712
  Receipt Date: 20130712
  Transmission Date: 20140515
  Serious: Yes (Hospitalization)
  Sender: FDA-Public Use
  Company Number: FR-BRISTOL-MYERS SQUIBB COMPANY-18876433

PATIENT
  Age: 15 Year
  Sex: Female
  Weight: 87 kg

DRUGS (1)
  1. ABILIFY TABS 5 MG [Suspect]
     Indication: ABNORMAL BEHAVIOUR
     Dosage: 1DF= 2013 TO 2013- 5/10MG?INTER?RESTART 6MAY13-5MG/D
     Route: 048
     Dates: start: 20130318, end: 20130407

REACTIONS (3)
  - Dizziness [Recovered/Resolved]
  - Headache [Recovered/Resolved]
  - Loss of consciousness [Recovered/Resolved]
